FAERS Safety Report 10194813 (Version 1)
Quarter: 2014Q2

REPORT INFORMATION
  Report Type: Report from Study
  Country: US (occurrence: US)
  Receive Date: 20140526
  Receipt Date: 20140526
  Transmission Date: 20141212
  Serious: Yes (Other)
  Sender: FDA-Public Use
  Company Number: US-ROCHE-1350516

PATIENT
  Age: 75 Year
  Sex: Male

DRUGS (13)
  1. LUCENTIS [Suspect]
     Indication: DIABETIC RETINAL OEDEMA
     Route: 050
     Dates: start: 20110602
  2. LUCENTIS [Suspect]
     Indication: DIABETIC RETINOPATHY
     Route: 050
  3. LUCENTIS [Suspect]
     Indication: AGE-RELATED MACULAR DEGENERATION
     Route: 050
     Dates: start: 20110922, end: 20110922
  4. LUCENTIS [Suspect]
     Route: 050
     Dates: start: 20110630, end: 20110630
  5. LUCENTIS [Suspect]
     Route: 050
     Dates: start: 20111117, end: 20111117
  6. AVASTIN [Suspect]
     Indication: DIABETIC RETINAL OEDEMA
     Route: 050
  7. AVASTIN [Suspect]
     Indication: DIABETIC RETINOPATHY
  8. AVASTIN [Suspect]
     Indication: AGE-RELATED MACULAR DEGENERATION
  9. TROPICAMIDE [Concomitant]
     Route: 047
  10. PHENYLEPHRINE [Concomitant]
     Route: 047
  11. PROPARACAINE [Concomitant]
     Indication: ANAESTHESIA
  12. LIDOCAINE [Concomitant]
     Route: 065
  13. BETADINE [Concomitant]

REACTIONS (22)
  - Cerebrovascular accident [Unknown]
  - Myocardial infarction [Unknown]
  - Eye irritation [Unknown]
  - Diabetic retinal oedema [Unknown]
  - Subretinal fibrosis [Unknown]
  - Vitreous floaters [Unknown]
  - Conjunctival haemorrhage [Unknown]
  - Macular degeneration [Unknown]
  - Ocular discomfort [Unknown]
  - Eye pain [Unknown]
  - Eye oedema [Unknown]
  - Visual acuity reduced [Unknown]
  - Macular cyst [Unknown]
  - Macular ischaemia [Unknown]
  - Macular fibrosis [Unknown]
  - Vitreous detachment [Unknown]
  - Retinal disorder [Unknown]
  - Vision blurred [Unknown]
  - Muscular weakness [Unknown]
  - Incorrect dose administered [Unknown]
  - Off label use [Unknown]
  - Overdose [Unknown]
